FAERS Safety Report 24180791 (Version 1)
Quarter: 2024Q3

REPORT INFORMATION
  Report Type: Spontaneous
  Country: DE (occurrence: DE)
  Receive Date: 20240806
  Receipt Date: 20240806
  Transmission Date: 20241017
  Serious: Yes (Congenital Anomaly, Other)
  Sender: DUCHESNAY
  Company Number: DE-EXELTIS PHARMACEUTICAL HOLDING, S.L.-2407DE06090

PATIENT

DRUGS (2)
  1. DOXYLAMINE SUCCINATE\PYRIDOXINE HYDROCHLORIDE [Suspect]
     Active Substance: DOXYLAMINE SUCCINATE\PYRIDOXINE HYDROCHLORIDE
     Indication: Foetal exposure during pregnancy
     Dosage: 1XDAILY
     Route: 064
  2. Femibion [Concomitant]
     Indication: Product used for unknown indication
     Route: 064

REACTIONS (1)
  - Congenital hand malformation [Not Recovered/Not Resolved]
